FAERS Safety Report 14197086 (Version 2)
Quarter: 2017Q4

REPORT INFORMATION
  Report Type: Report from Study
  Country: US (occurrence: US)
  Receive Date: 20171116
  Receipt Date: 20171127
  Transmission Date: 20180321
  Serious: Yes (Other)
  Sender: FDA-Public Use
  Company Number: US-ACTELION-A-US2017-162384

PATIENT
  Age: 48 Year
  Sex: Female

DRUGS (20)
  1. MYCOPHENOLATE [Concomitant]
     Active Substance: MYCOPHENOLIC ACID
     Dosage: 1000 MG, BID
  2. ASPIRIN. [Concomitant]
     Active Substance: ASPIRIN
  3. LISINOPRIL. [Concomitant]
     Active Substance: LISINOPRIL
     Dosage: 5 MG, QD
  4. CELEBREX [Concomitant]
     Active Substance: CELECOXIB
  5. GABAPENTIN. [Concomitant]
     Active Substance: GABAPENTIN
  6. RANITIDINE. [Concomitant]
     Active Substance: RANITIDINE
  7. RITUXIMAB. [Concomitant]
     Active Substance: RITUXIMAB
  8. OPSUMIT [Suspect]
     Active Substance: MACITENTAN
     Indication: PULMONARY ARTERIAL HYPERTENSION
     Dosage: 10 MG, QD
     Route: 048
     Dates: start: 20170301
  9. NEXIUM [Concomitant]
     Active Substance: ESOMEPRAZOLE MAGNESIUM
  10. METFORMIN [Concomitant]
     Active Substance: METFORMIN HYDROCHLORIDE
  11. SULFAMETHOXAZOLE [Concomitant]
     Active Substance: SULFAMETHOXAZOLE
  12. LANTUS [Concomitant]
     Active Substance: INSULIN GLARGINE
  13. ACYCLOVIR. [Concomitant]
     Active Substance: ACYCLOVIR
  14. AMLODIPINE [Concomitant]
     Active Substance: AMLODIPINE BESYLATE
  15. LASIX [Concomitant]
     Active Substance: FUROSEMIDE
  16. AUGMENTIN [Concomitant]
     Active Substance: AMOXICILLIN\CLAVULANATE POTASSIUM
  17. OMEPRAZOLE. [Concomitant]
     Active Substance: OMEPRAZOLE
  18. IBUPROFEN. [Concomitant]
     Active Substance: IBUPROFEN
  19. PREDNISONE. [Concomitant]
     Active Substance: PREDNISONE
     Dosage: 10 MG, QD
  20. TYLENOL [Concomitant]
     Active Substance: ACETAMINOPHEN

REACTIONS (1)
  - Foot fracture [Unknown]

NARRATIVE: CASE EVENT DATE: 20171025
